FAERS Safety Report 4398848-5 (Version None)
Quarter: 2004Q3

REPORT INFORMATION
  Report Type: 
  Country: None (occurrence: None)
  Receive Date: 20040712
  Receipt Date: 20040629
  Transmission Date: 20050211
  Serious: Yes (Other)
  Sender: FDA-Public Use
  Company Number: US-JNJFOC-20040502989

PATIENT
  Age: 29 Year
  Sex: Female
  Weight: 54.4316 kg

DRUGS (1)
  1. ORTHO TRI-CYCLEN [Suspect]
     Dosage: 1 DOSE (S), 1 IN 1 DAY, ORAL
     Route: 048
     Dates: start: 20030101

REACTIONS (12)
  - ASTHENIA [None]
  - CALCINOSIS [None]
  - CEREBRAL ISCHAEMIA [None]
  - CONVULSION [None]
  - DIPLOPIA [None]
  - DIZZINESS [None]
  - GAIT DISTURBANCE [None]
  - HEADACHE [None]
  - PHLEBOTHROMBOSIS [None]
  - PULMONARY EMBOLISM [None]
  - SUPERIOR SAGITTAL SINUS THROMBOSIS [None]
  - VISION BLURRED [None]
